FAERS Safety Report 21026015 (Version 2)
Quarter: 2022Q3

REPORT INFORMATION
  Report Type: Report from Study
  Country: US (occurrence: US)
  Receive Date: 20220630
  Receipt Date: 20220719
  Transmission Date: 20221026
  Serious: Yes (Hospitalization, Other)
  Sender: FDA-Public Use
  Company Number: US-ABBVIE-22K-163-4452129-00

PATIENT
  Sex: Female

DRUGS (2)
  1. RINVOQ [Suspect]
     Active Substance: UPADACITINIB
     Indication: Rheumatoid arthritis
     Dosage: EXTENDED RELEASE
     Route: 048
     Dates: start: 20220428, end: 20220624
  2. RINVOQ [Suspect]
     Active Substance: UPADACITINIB
     Dosage: EXTENDED RELEASE
     Route: 048
     Dates: start: 2022

REACTIONS (7)
  - Fall [Unknown]
  - Chest injury [Unknown]
  - Hypotension [Unknown]
  - Blood potassium decreased [Unknown]
  - Arthralgia [Unknown]
  - Lung neoplasm [Unknown]
  - Skin laceration [Unknown]

NARRATIVE: CASE EVENT DATE: 20220101
